FAERS Safety Report 5885239-0 (Version None)
Quarter: 2008Q3

REPORT INFORMATION
  Report Type: 
  Country: None (occurrence: None)
  Receive Date: 20080916
  Receipt Date: 20080904
  Transmission Date: 20090109
  Serious: Yes (Other)
  Sender: FDA-Public Use
  Company Number: ES-PFIZER INC-2008048601

PATIENT
  Sex: Female

DRUGS (2)
  1. LYRICA [Suspect]
     Indication: FIBROMYALGIA
     Dosage: DAILY DOSE:150MG
     Route: 048
     Dates: start: 20080207, end: 20080605
  2. DULOXETINE [Concomitant]
     Route: 048
     Dates: start: 20080207, end: 20080601

REACTIONS (7)
  - CATARACT [None]
  - DRY MOUTH [None]
  - GAIT DISTURBANCE [None]
  - HEADACHE [None]
  - SYNCOPE [None]
  - VISION BLURRED [None]
  - VISUAL ACUITY REDUCED [None]
